FAERS Safety Report 9896900 (Version 1)
Quarter: 2014Q1

REPORT INFORMATION
  Report Type: Report from Study
  Country: US (occurrence: US)
  Receive Date: 20140214
  Receipt Date: 20140214
  Transmission Date: 20141002
  Serious: Yes (Other)
  Sender: FDA-Public Use
  Company Number: US-ROCHE-1325363

PATIENT
  Age: 60 Year
  Sex: Male

DRUGS (30)
  1. AVASTIN [Suspect]
     Indication: COLON CANCER METASTATIC
     Route: 042
     Dates: start: 20120723
  2. AVASTIN [Suspect]
     Route: 042
  3. CAMPTOSAR [Concomitant]
     Route: 042
  4. 5-FU [Concomitant]
     Route: 040
  5. 5-FU [Concomitant]
     Route: 040
  6. 5-FU [Concomitant]
     Route: 040
  7. 5-FU [Concomitant]
     Route: 041
  8. 5-FU [Concomitant]
     Route: 041
  9. 5-FU [Concomitant]
     Route: 041
  10. 5-FU [Concomitant]
     Route: 041
  11. LEUCOVORIN [Concomitant]
     Route: 042
  12. LEUCOVORIN [Concomitant]
     Route: 042
  13. NEUPOGEN [Concomitant]
     Route: 065
  14. NEULASTA [Concomitant]
     Route: 065
  15. ATROPINE [Concomitant]
     Route: 065
  16. ATROPINE [Concomitant]
     Route: 065
  17. ALOXI [Concomitant]
     Route: 065
  18. DECADRON [Concomitant]
     Route: 065
  19. DECADRON [Concomitant]
     Route: 065
  20. ARANESP [Concomitant]
     Route: 065
  21. CIPRO [Concomitant]
     Route: 048
  22. LEVAQUIN [Concomitant]
     Route: 048
  23. LOMOTIL (UNITED STATES) [Concomitant]
     Indication: DIARRHOEA
     Dosage: DOSE: 2.5-0.025 MG PRN
     Route: 048
  24. AVODART [Concomitant]
     Route: 048
  25. TAMSULOSIN [Concomitant]
     Route: 048
  26. WARFARIN [Concomitant]
     Route: 048
  27. COMPAZINE [Concomitant]
     Route: 048
  28. VICODIN [Concomitant]
     Indication: PAIN
     Dosage: DOSE: 5-500 MG PRN
     Route: 048
  29. OXALIPLATIN [Concomitant]
     Route: 065
  30. OXALIPLATIN [Concomitant]
     Route: 065

REACTIONS (18)
  - Renal failure acute [Unknown]
  - Obstructive uropathy [Unknown]
  - Hydronephrosis [Unknown]
  - Iron deficiency anaemia [Unknown]
  - Renal failure chronic [Unknown]
  - Neutropenia [Unknown]
  - Oedema peripheral [Unknown]
  - Haematuria [Unknown]
  - Abdominal pain [Unknown]
  - Deep vein thrombosis [Unknown]
  - Leukopenia [Unknown]
  - Abnormal faeces [Unknown]
  - Nausea [Unknown]
  - Gastrointestinal inflammation [Unknown]
  - Diarrhoea [Unknown]
  - Weight increased [Unknown]
  - Benign prostatic hyperplasia [Unknown]
  - Urinary tract obstruction [Unknown]
